FAERS Safety Report 14227110 (Version 1)
Quarter: 2017Q4

REPORT INFORMATION
  Report Type: Spontaneous
  Country: US (occurrence: US)
  Receive Date: 20171127
  Receipt Date: 20171127
  Transmission Date: 20180321
  Serious: Yes (Other)
  Sender: FDA-Public Use
  Company Number: US-PFIZER INC-2017504096

PATIENT
  Sex: Female
  Weight: 65.8 kg

DRUGS (1)
  1. VERAPAMIL HCL [Suspect]
     Active Substance: VERAPAMIL HYDROCHLORIDE
     Indication: BLOOD PRESSURE ABNORMAL
     Dosage: UNK
     Route: 048
     Dates: end: 2016

REACTIONS (2)
  - Renal cancer [Recovered/Resolved with Sequelae]
  - Joint swelling [Recovered/Resolved]

NARRATIVE: CASE EVENT DATE: 201507
